FAERS Safety Report 9894117 (Version 1)
Quarter: 2014Q1

REPORT INFORMATION
  Report Type: Spontaneous
  Country: JP (occurrence: JP)
  Receive Date: 20140213
  Receipt Date: 20140213
  Transmission Date: 20141002
  Serious: Yes (Other)
  Sender: FDA-Public Use
  Company Number: JP-PFIZER INC-2014037859

PATIENT
  Age: 53 Year
  Sex: Male

DRUGS (4)
  1. ADRIACIN [Suspect]
     Indication: HODGKIN^S DISEASE
     Dosage: 50 MG, 1X/DAY
     Route: 042
     Dates: start: 20131227, end: 20131227
  2. DACARBAZINE [Concomitant]
     Dosage: UNK
     Dates: start: 20131227
  3. BLEOMYCIN HYDROCHLORIDE [Concomitant]
  4. VINBLASTINE [Concomitant]

REACTIONS (1)
  - Hepatic function abnormal [Recovered/Resolved]
